FAERS Safety Report 9365902 (Version 1)
Quarter: 2013Q2

REPORT INFORMATION
  Report Type: Spontaneous
  Country: CA (occurrence: CA)
  Receive Date: 20130625
  Receipt Date: 20130625
  Transmission Date: 20140414
  Serious: Yes (Hospitalization)
  Sender: FDA-Public Use
  Company Number: CA-B.I. PHARMACEUTICALS,INC./RIDGEFIELD-2013-CN-01117CN

PATIENT
  Age: 84 Year
  Sex: Male

DRUGS (9)
  1. PRADAX [Suspect]
     Dosage: 220 MG
     Route: 048
  2. BETOPTIC S [Concomitant]
  3. CLONIDINE [Concomitant]
  4. CRESTOR [Concomitant]
  5. DIOVAN-HCT [Concomitant]
  6. IPRATROPIUM [Concomitant]
  7. SPIRIVA [Concomitant]
  8. TIAZAC XC [Concomitant]
  9. TRUSOPT (PRESERVATIVE-FREE FORMULATION) [Concomitant]

REACTIONS (4)
  - Dyspnoea [Recovered/Resolved]
  - Fatigue [Recovered/Resolved]
  - Haemoglobin decreased [Recovered/Resolved]
  - Haemorrhage [Recovered/Resolved]
